FAERS Safety Report 9879506 (Version 3)
Quarter: 2014Q1

REPORT INFORMATION
  Report Type: Spontaneous
  Country: US (occurrence: US)
  Receive Date: 20140206
  Receipt Date: 20140228
  Transmission Date: 20141002
  Serious: No
  Sender: FDA-Public Use
  Company Number: US-009507513-1401USA014589

PATIENT
  Age: 30 Year
  Sex: Female
  Weight: 50.34 kg

DRUGS (2)
  1. INVANZ [Suspect]
     Indication: POST PROCEDURAL INFECTION
     Dosage: TOTAL DAILY DOSE: 1G
     Route: 042
     Dates: start: 20140125
  2. DAPTOMYCIN [Concomitant]
     Dosage: TOTAL DAILY DOSE: 400 MG
     Route: 042
     Dates: start: 20140125, end: 20140207

REACTIONS (2)
  - Anxiety [Recovered/Resolved]
  - Dyspnoea [Recovered/Resolved]
